FAERS Safety Report 23436641 (Version 2)
Quarter: 2024Q1

REPORT INFORMATION
  Report Type: Spontaneous
  Country: JP (occurrence: JP)
  Receive Date: 20240124
  Receipt Date: 20240222
  Transmission Date: 20240409
  Serious: Yes (Death, Hospitalization, Other)
  Sender: FDA-Public Use
  Company Number: JP-GILEAD-2024-0657767

PATIENT
  Age: 6 Decade
  Sex: Male

DRUGS (2)
  1. BIKTARVY [Suspect]
     Active Substance: BICTEGRAVIR SODIUM\EMTRICITABINE\TENOFOVIR ALAFENAMIDE FUMARATE
     Indication: Acquired immunodeficiency syndrome
     Dosage: UNK, QD
     Route: 048
     Dates: start: 20231130, end: 20240108
  2. FOSCARNET SODIUM [Concomitant]
     Active Substance: FOSCARNET SODIUM
     Indication: Cytomegalovirus enterocolitis
     Dosage: UNK
     Dates: start: 20231221

REACTIONS (1)
  - Cytomegalovirus enterocolitis [Fatal]

NARRATIVE: CASE EVENT DATE: 20231201
